FAERS Safety Report 10896935 (Version 1)
Quarter: 2015Q1

REPORT INFORMATION
  Report Type: Spontaneous
  Country: AU (occurrence: AU)
  Receive Date: 20150309
  Receipt Date: 20150309
  Transmission Date: 20150721
  Serious: Yes (Life-Threatening, Hospitalization, Other)
  Sender: FDA-Public Use
  Company Number: AU-MYLANLABS-2015M1007070

PATIENT

DRUGS (7)
  1. OCTREOTIDE [Suspect]
     Active Substance: OCTREOTIDE
     Indication: OFF LABEL USE
     Dosage: 30MG MONTHLY
  2. DIAZOXIDE [Suspect]
     Active Substance: DIAZOXIDE
     Dosage: HIGH-DOSE
     Route: 065
  3. HYDROCHLOROTHIAZIDE. [Suspect]
     Active Substance: HYDROCHLOROTHIAZIDE
     Route: 065
  4. OCTREOTIDE [Suspect]
     Active Substance: OCTREOTIDE
     Indication: PANCREATIC NEUROENDOCRINE TUMOUR
     Dosage: 20MG MONTHLY
  5. OCTREOTIDE [Concomitant]
     Active Substance: OCTREOTIDE
     Indication: OFF LABEL USE
  6. OCTREOTIDE [Concomitant]
     Active Substance: OCTREOTIDE
     Indication: PANCREATIC NEUROENDOCRINE TUMOUR
     Route: 058
  7. DEXAMETHASONE. [Suspect]
     Active Substance: DEXAMETHASONE
     Route: 065

REACTIONS (4)
  - Weight increased [Unknown]
  - Hyponatraemia [Unknown]
  - Fluid overload [Recovered/Resolved]
  - Hypoglycaemic unconsciousness [Recovered/Resolved]
